FAERS Safety Report 5480237-3 (Version None)
Quarter: 2007Q4

REPORT INFORMATION
  Report Type: 
  Country: None (occurrence: None)
  Receive Date: 20071009
  Receipt Date: 20071002
  Transmission Date: 20080405
  Serious: Yes (Disabling)
  Sender: FDA-Public Use
  Company Number: JP-BAYER-200715107GDS

PATIENT
  Age: 55 Year
  Sex: Female

DRUGS (3)
  1. SORAFENIB [Suspect]
     Indication: RENAL CELL CARCINOMA STAGE UNSPECIFIED
     Route: 048
     Dates: start: 20060302, end: 20060314
  2. TS 1 [Concomitant]
     Indication: RENAL CELL CARCINOMA STAGE UNSPECIFIED
     Route: 065
     Dates: end: 20051201
  3. PROLEUKIN [Concomitant]
     Indication: RENAL CELL CARCINOMA STAGE UNSPECIFIED
     Route: 065

REACTIONS (4)
  - GAIT DISTURBANCE [None]
  - SCLERODERMA [None]
  - SKIN EXFOLIATION [None]
  - SUBCUTANEOUS ABSCESS [None]
